FAERS Safety Report 11166126 (Version 2)
Quarter: 2015Q3

REPORT INFORMATION
  Report Type: Spontaneous
  Country: IE (occurrence: IE)
  Receive Date: 20150605
  Receipt Date: 20150719
  Transmission Date: 20151125
  Serious: Yes (Death, Other)
  Sender: FDA-Public Use
  Company Number: IE-009507513-1505IRL006490

PATIENT
  Age: 86 Year
  Sex: Female

DRUGS (6)
  1. ASPIRIN. [Concomitant]
     Active Substance: ASPIRIN
     Indication: CARDIAC DISORDER
     Dosage: DAILY DOSE AS 75MG
  2. TELMISARTAN. [Concomitant]
     Active Substance: TELMISARTAN
     Indication: HYPERTENSION
     Dosage: DAILY DOSE AS 40MG
  3. OMEPRAZOLE. [Concomitant]
     Active Substance: OMEPRAZOLE
     Indication: PROPHYLAXIS
     Dosage: DAILY DOSE AS 40MG
     Route: 048
  4. SPIRONOLACTONE. [Concomitant]
     Active Substance: SPIRONOLACTONE
     Indication: HYPERTENSION
     Dosage: DAILY DOSE AS 25 MG
  5. SINEMET CR [Suspect]
     Active Substance: CARBIDOPA\LEVODOPA
     Dosage: UNK
     Route: 048
  6. SINEMET PLUS 25MG/100MG TABLETS [Suspect]
     Active Substance: CARBIDOPA\LEVODOPA
     Indication: PARKINSON^S DISEASE
     Dosage: 25/100MG, TID
     Route: 048

REACTIONS (4)
  - Cerebral haemorrhage [Fatal]
  - Dysphagia [Fatal]
  - Fall [Fatal]
  - Drug dose omission [Unknown]

NARRATIVE: CASE EVENT DATE: 20150513
